FAERS Safety Report 6409627-9 (Version None)
Quarter: 2009Q4

REPORT INFORMATION
  Report Type: 
  Country: None (occurrence: None)
  Receive Date: 20091022
  Receipt Date: 20091012
  Transmission Date: 20100525
  Serious: Yes (Hospitalization)
  Sender: FDA-Public Use
  Company Number: NL-PFIZER INC-2009270254

PATIENT
  Age: 59 Year

DRUGS (6)
  1. CYCLOSPORINE [Suspect]
     Indication: KIDNEY TRANSPLANT REJECTION
     Dosage: 150 MG, 2X/DAY
     Route: 048
     Dates: start: 20090116
  2. PREDNISOLONE AND PREDNISOLONE STEAGLATE [Suspect]
     Dosage: 10 MG, 1X/DAY
  3. MYCOPHENOLATE MOFETIL [Suspect]
     Indication: KIDNEY TRANSPLANT REJECTION
     Dosage: 500 MG, 2X/DAY
     Route: 048
     Dates: start: 20090116
  4. ESOMEPRAZOLE [Concomitant]
     Dosage: 40 MG, UNK
     Route: 048
     Dates: start: 20090407
  5. NOVORAPID [Concomitant]
     Dosage: UNK
     Route: 058
  6. LANTUS [Concomitant]
     Dosage: UNK
     Route: 058

REACTIONS (1)
  - INFECTION [None]
